FAERS Safety Report 5354777-1 (Version None)
Quarter: 2007Q2

REPORT INFORMATION
  Report Type: 
  Country: None (occurrence: None)
  Receive Date: 20070612
  Receipt Date: 20070531
  Transmission Date: 20071010
  Serious: Yes (Other)
  Sender: FDA-Public Use
  Company Number: PT-PFIZER INC-2007046145

PATIENT
  Sex: Female

DRUGS (2)
  1. CHAMPIX [Suspect]
     Indication: SMOKING CESSATION THERAPY
     Route: 048
  2. CONTRACEPTIVE, UNSPECIFIED [Interacting]
     Indication: CONTRACEPTION

REACTIONS (5)
  - DRUG INTERACTION [None]
  - MENSTRUAL DISORDER [None]
  - MENSTRUATION DELAYED [None]
  - PREGNANCY [None]
  - WEIGHT INCREASED [None]
